FAERS Safety Report 5881791-X (Version None)
Quarter: 2008Q3

REPORT INFORMATION
  Report Type: 
  Country: None (occurrence: None)
  Receive Date: 20080912
  Receipt Date: 20080711
  Transmission Date: 20090109
  Serious: No
  Sender: FDA-Public Use
  Company Number: US-ABBOTT-08P-163-0462644-00

PATIENT
  Sex: Female
  Weight: 82.628 kg

DRUGS (12)
  1. HUMIRA [Suspect]
     Indication: ANKYLOSING SPONDYLITIS
     Route: 050
     Dates: start: 20080502
  2. FUROSEMIDE [Concomitant]
     Indication: DRUG USE FOR UNKNOWN INDICATION
     Route: 048
     Dates: start: 20070101
  3. DULOXETINE HYDROCHLORIDE [Concomitant]
     Indication: DRUG USE FOR UNKNOWN INDICATION
     Dosage: 60 MG DAILY
     Route: 048
     Dates: start: 20050101
  4. CETIRIZINE HYDROCHLORIDE [Concomitant]
     Indication: DRUG USE FOR UNKNOWN INDICATION
     Dosage: 1 PILL DAILY
     Route: 048
  5. METFORMIN HCL [Concomitant]
     Indication: DIABETES MELLITUS
     Route: 048
  6. LANSOPRAZOLE [Concomitant]
     Indication: GASTRIC DISORDER
     Dosage: 15 MG DAILY
     Route: 048
  7. ROSUVASTATIN [Concomitant]
     Indication: BLOOD CHOLESTEROL INCREASED
     Dosage: 10 MG DAILY
     Route: 048
     Dates: start: 20080401
  8. PREGABALIN [Concomitant]
     Indication: FIBROMYALGIA
     Route: 048
     Dates: start: 20070101
  9. PROPRANOLOL [Concomitant]
     Indication: HEART RATE
     Dosage: 80 MG DAILY
     Route: 048
     Dates: start: 20070101
  10. VITAMINS WITH MINERALS [Concomitant]
     Indication: DRUG USE FOR UNKNOWN INDICATION
     Dosage: 1 PILL DAILY
     Route: 048
  11. ERGOCALCIFEROL [Concomitant]
     Indication: FIBROMYALGIA
     Dosage: 2000 UNITS DAILY
     Route: 048
  12. ACETYLSALICYLIC ACID SRT [Concomitant]
     Indication: CARDIAC DISORDER
     Dosage: 81 MG DAILY
     Route: 048
     Dates: start: 20050101

REACTIONS (1)
  - WEIGHT LOSS POOR [None]
